FAERS Safety Report 4727846-4 (Version None)
Quarter: 2005Q3

REPORT INFORMATION
  Report Type: 
  Country: None (occurrence: None)
  Receive Date: 20050728
  Receipt Date: 20050412
  Transmission Date: 20060218
  Serious: Yes (Hospitalization)
  Sender: FDA-Public Use
  Company Number: US-MERCK-0504USA02230

PATIENT
  Age: 46 Year
  Sex: Male
  Weight: 100 kg

DRUGS (6)
  1. VIOXX [Suspect]
     Indication: ARTHRITIS
     Route: 048
     Dates: start: 20001101, end: 20020501
  2. VIOXX [Suspect]
     Route: 048
     Dates: start: 20020501, end: 20030401
  3. GLUCOPHAGE [Concomitant]
     Route: 065
  4. GLUCOTROL XL [Concomitant]
     Route: 065
  5. ACTOS [Concomitant]
     Route: 065
  6. NEURONTIN [Concomitant]
     Route: 065

REACTIONS (9)
  - CARDIAC DISORDER [None]
  - CHEST PAIN [None]
  - CORONARY ARTERY DISEASE [None]
  - DEPRESSION [None]
  - DYSPNOEA [None]
  - GASTROOESOPHAGEAL REFLUX DISEASE [None]
  - HEART INJURY [None]
  - OEDEMA PERIPHERAL [None]
  - SLEEP APNOEA SYNDROME [None]
